FAERS Safety Report 9135366 (Version 1)
Quarter: 2013Q1

REPORT INFORMATION
  Report Type: Spontaneous
  Country: PL (occurrence: PL)
  Receive Date: 20130304
  Receipt Date: 20130304
  Transmission Date: 20140127
  Serious: Yes (Other)
  Sender: FDA-Public Use
  Company Number: PHHY2013PL020548

PATIENT
  Sex: 0

DRUGS (2)
  1. MYFORTIC [Suspect]
     Dosage: UNK UKN, UNK
  2. NEORAL [Suspect]
     Dosage: UNK UKN, UNK

REACTIONS (1)
  - Renal failure [Unknown]
